FAERS Safety Report 15772325 (Version 1)
Quarter: 2018Q4

REPORT INFORMATION
  Report Type: Report from Study
  Country: US (occurrence: US)
  Receive Date: 20181228
  Receipt Date: 20181228
  Transmission Date: 20190205
  Serious: Yes (Hospitalization)
  Sender: FDA-Public Use
  Company Number: US-ACTELION-A-NJ2018-171694

PATIENT
  Age: 62 Year
  Sex: Female
  Weight: 58.5 kg

DRUGS (2)
  1. UPTRAVI [Suspect]
     Active Substance: SELEXIPAG
     Indication: PULMONARY HYPERTENSION
     Dosage: 1600 MCG, BID
     Route: 048
  2. TRACLEER [Suspect]
     Active Substance: BOSENTAN
     Indication: PULMONARY HYPERTENSION
     Dosage: 125 MG, BID
     Route: 048

REACTIONS (6)
  - Syncope [Unknown]
  - Electrocardiogram ambulatory [Unknown]
  - Fatigue [Unknown]
  - Hospitalisation [Unknown]
  - Presyncope [Unknown]
  - Sinusitis [Unknown]

NARRATIVE: CASE EVENT DATE: 20180401
